FAERS Safety Report 6933443-2 (Version None)
Quarter: 2010Q3

REPORT INFORMATION
  Report Type: 
  Country: None (occurrence: None)
  Receive Date: 20100820
  Receipt Date: 20100802
  Transmission Date: 20110219
  Serious: No
  Sender: FDA-Public Use
  Company Number: US-PFIZER INC-2010097557

PATIENT
  Sex: Male
  Weight: 107.94 kg

DRUGS (3)
  1. TOVIAZ [Suspect]
     Indication: HYPERTONIC BLADDER
     Dosage: 8 MG, 1X/DAY
     Route: 048
     Dates: start: 20100701
  2. LISINOPRIL [Concomitant]
     Indication: HYPERTENSION
     Dosage: UNK
  3. HYDROCODONE [Concomitant]
     Dosage: UNK

REACTIONS (2)
  - DRUG INEFFECTIVE [None]
  - INCONTINENCE [None]
